FAERS Safety Report 25310077 (Version 2)
Quarter: 2025Q2

REPORT INFORMATION
  Report Type: Other
  Country: US (occurrence: US)
  Receive Date: 20250514
  Receipt Date: 20250618
  Transmission Date: 20250717
  Serious: Yes (Other)
  Sender: INTERCEPT PHARMACEUTICALS
  Company Number: US-INTERCEPT-PM2025000372

PATIENT
  Sex: Female

DRUGS (20)
  1. OCALIVA [Suspect]
     Active Substance: OBETICHOLIC ACID
     Indication: Primary biliary cholangitis
     Dosage: 5 MILLIGRAM, QD
     Route: 048
     Dates: start: 20160810
  2. URSODIOL [Concomitant]
     Active Substance: URSODIOL
  3. FAMOTIDINE [Concomitant]
     Active Substance: FAMOTIDINE
  4. LINZESS [Concomitant]
     Active Substance: LINACLOTIDE
  5. MINERALS\VITAMINS [Concomitant]
     Active Substance: MINERALS\VITAMINS
  6. ZINC CHELATED [Concomitant]
  7. VITAMIN D3 [Concomitant]
     Active Substance: CHOLECALCIFEROL
  8. VITAMIN B12 [Concomitant]
     Active Substance: CYANOCOBALAMIN
  9. CHONDROITIN SULFATE (BOVINE)\GLUCOSAMINE [Concomitant]
     Active Substance: CHONDROITIN SULFATE (BOVINE)\GLUCOSAMINE SULFATE
  10. METAMUCIL [Concomitant]
     Active Substance: PLANTAGO SEED
  11. MIRALAX [Concomitant]
     Active Substance: POLYETHYLENE GLYCOL 3350
  12. GABAPENTIN [Concomitant]
     Active Substance: GABAPENTIN
  13. METHOTREXATE [Concomitant]
     Active Substance: METHOTREXATE
  14. IBUPROFEN [Concomitant]
     Active Substance: IBUPROFEN
  15. CALCIUM\CHOLECALCIFEROL\MINERALS [Concomitant]
     Active Substance: CALCIUM\CHOLECALCIFEROL\MINERALS
  16. GARLIC [Concomitant]
     Active Substance: GARLIC
  17. PROBIOTIC 10 [BIFIDOBACTERIUM BIFIDUM;BIFIDOBACTERIUM LACTIS;LACTOBACI [Concomitant]
  18. DIETARY SUPPLEMENT\HERBALS\MILK THISTLE [Concomitant]
     Active Substance: MILK THISTLE
  19. VAGIFEM [Concomitant]
     Active Substance: ESTRADIOL
  20. ADVAIR HFA [Concomitant]
     Active Substance: FLUTICASONE PROPIONATE\SALMETEROL XINAFOATE

REACTIONS (3)
  - Faecaloma [Not Recovered/Not Resolved]
  - Cough [Recovering/Resolving]
  - Pruritus [Not Recovered/Not Resolved]
